FAERS Safety Report 18147093 (Version 4)
Quarter: 2020Q4

REPORT INFORMATION
  Report Type: Report from Study
  Country: CO (occurrence: CO)
  Receive Date: 20200813
  Receipt Date: 20201009
  Transmission Date: 20210113
  Serious: Yes (Other)
  Sender: FDA-Public Use
  Company Number: CO-JNJFOC-20200808664

PATIENT
  Age: 76 Year
  Sex: Male
  Weight: 80 kg

DRUGS (10)
  1. XARELTO [Concomitant]
     Active Substance: RIVAROXABAN
  2. SIMPONI [Suspect]
     Active Substance: GOLIMUMAB
     Indication: ANKYLOSING SPONDYLITIS
     Route: 058
     Dates: start: 20130410
  3. MESALAZINE [Concomitant]
     Active Substance: MESALAMINE
  4. LORAZEPAM. [Concomitant]
     Active Substance: LORAZEPAM
  5. VITAMIN C [Concomitant]
     Active Substance: ASCORBIC ACID
  6. PANCREATIN [Concomitant]
     Active Substance: PANCRELIPASE
  7. GALVUS [Concomitant]
     Active Substance: VILDAGLIPTIN
  8. DOLEX                              /00020001/ [Concomitant]
  9. VITAMIN D                          /00107901/ [Concomitant]
     Active Substance: ERGOCALCIFEROL
  10. MOSAPRIDE [Concomitant]
     Active Substance: MOSAPRIDE

REACTIONS (2)
  - COVID-19 [Not Recovered/Not Resolved]
  - Pain [Not Recovered/Not Resolved]

NARRATIVE: CASE EVENT DATE: 2020
